FAERS Safety Report 15008500 (Version 2)
Quarter: 2018Q2

REPORT INFORMATION
  Report Type: Spontaneous
  Country: DE (occurrence: DE)
  Receive Date: 20180613
  Receipt Date: 20180625
  Transmission Date: 20180711
  Serious: Yes (Other)
  Sender: FDA-Public Use
  Company Number: DE-CELGENEUS-DEU-20180506301

PATIENT
  Age: 6 Decade
  Sex: Female

DRUGS (2)
  1. REVLIMID [Suspect]
     Active Substance: LENALIDOMIDE
     Dosage: 5 MILLIGRAM
     Route: 048
     Dates: start: 20180528
  2. REVLIMID [Suspect]
     Active Substance: LENALIDOMIDE
     Indication: PLASMA CELL MYELOMA
     Dosage: 10 MILLIGRAM
     Route: 048
     Dates: start: 20180202, end: 20180221

REACTIONS (5)
  - Sleep disorder [Unknown]
  - Thrombosis [Unknown]
  - Drug intolerance [Recovered/Resolved]
  - Immune system disorder [Unknown]
  - Skin irritation [Unknown]

NARRATIVE: CASE EVENT DATE: 20180210
